FAERS Safety Report 11444624 (Version 1)
Quarter: 2015Q3

REPORT INFORMATION
  Report Type: Spontaneous
  Country: US (occurrence: None)
  Receive Date: 20150901
  Receipt Date: 20150901
  Transmission Date: 20151125
  Serious: Yes (Death)
  Sender: FDA-Public Use
  Company Number: None

PATIENT
  Age: 68 Year
  Sex: Male

DRUGS (1)
  1. CAPECITABINE 500MG TEVA [Suspect]
     Active Substance: CAPECITABINE
     Indication: PANCREATIC CARCINOMA
     Dosage: 2000MG IN AM AND 1500MG IN PM  14 DAYS ON AND 7 DAYS  PO
     Route: 048
     Dates: start: 20150417, end: 20150609

REACTIONS (1)
  - Death [None]

NARRATIVE: CASE EVENT DATE: 20150824
